FAERS Safety Report 9375045 (Version 2)
Quarter: 2013Q3

REPORT INFORMATION
  Report Type: Spontaneous
  Country: GB (occurrence: GB)
  Receive Date: 20130628
  Receipt Date: 20130807
  Transmission Date: 20140515
  Serious: Yes (Hospitalization)
  Sender: FDA-Public Use
  Company Number: GB-BAUSCH-BL-2013-003892

PATIENT
  Age: 67 Year
  Sex: Female

DRUGS (12)
  1. PREDNISOLONE [Suspect]
     Indication: PRODUCT USED FOR UNKNOWN INDICATION
     Route: 065
  2. BORTEZOMIB [Suspect]
     Indication: PRODUCT USED FOR UNKNOWN INDICATION
     Route: 065
  3. CYCLOPHOSPHAMIDE [Suspect]
     Indication: PRODUCT USED FOR UNKNOWN INDICATION
     Route: 065
  4. DOXORUBICIN [Suspect]
     Indication: PRODUCT USED FOR UNKNOWN INDICATION
  5. RITUXIMAB [Suspect]
     Indication: PRODUCT USED FOR UNKNOWN INDICATION
     Route: 065
     Dates: start: 20130529
  6. VINCRISTINE [Suspect]
     Route: 065
  7. ACICLOVIR [Concomitant]
     Dosage: 1 DAYS
     Route: 048
     Dates: start: 20130524
  8. ALLOPURINOL [Concomitant]
     Dosage: 1DAYS
     Route: 048
     Dates: start: 20130525
  9. CO-TRIMOXAZOLE [Concomitant]
     Route: 048
     Dates: start: 20130529
  10. DOMPERIDONE [Concomitant]
     Dosage: 1 DAYS
     Route: 048
     Dates: start: 20130528
  11. FLUCONAZOLE [Concomitant]
     Route: 048
     Dates: start: 20130524
  12. OMEPRAZOLE [Concomitant]
     Route: 048
     Dates: start: 20130518

REACTIONS (1)
  - Urinary tract infection [Not Recovered/Not Resolved]
